FAERS Safety Report 24732263 (Version 1)
Quarter: 2024Q4

REPORT INFORMATION
  Report Type: Spontaneous
  Country: IL (occurrence: IL)
  Receive Date: 20241213
  Receipt Date: 20241213
  Transmission Date: 20250115
  Serious: Yes (Hospitalization)
  Sender: TEVA
  Company Number: IL-TEVA-VS-3274276

PATIENT
  Age: 26 Year
  Sex: Male

DRUGS (1)
  1. COPAXONE [Suspect]
     Active Substance: GLATIRAMER ACETATE
     Indication: Product used for unknown indication
     Dosage: STARTED RECEIVING COPAXONE THROUGH XX IN 2024-08.
     Route: 065

REACTIONS (2)
  - Vomiting [Unknown]
  - Blood electrolytes decreased [Unknown]

NARRATIVE: CASE EVENT DATE: 20241101
